FAERS Safety Report 5664946-9 (Version None)
Quarter: 2008Q1

REPORT INFORMATION
  Report Type: 
  Country: None (occurrence: None)
  Receive Date: 20080314
  Receipt Date: 20080301
  Transmission Date: 20080703
  Serious: Yes (Death)
  Sender: FDA-Public Use
  Company Number: JP-ROCHE-551303

PATIENT
  Age: 71 Year
  Sex: Male

DRUGS (2)
  1. PEGASYS [Suspect]
     Route: 058
  2. COPEGUS [Suspect]
     Route: 048

REACTIONS (1)
  - CEREBRAL HAEMORRHAGE [None]
